FAERS Safety Report 17428223 (Version 1)
Quarter: 2020Q1

REPORT INFORMATION
  Report Type: Report from Study
  Country: NL (occurrence: NL)
  Receive Date: 20200217
  Receipt Date: 20200217
  Transmission Date: 20200409
  Serious: Yes (Other)
  Sender: FDA-Public Use
  Company Number: NL-BAYER-2020-025387

PATIENT
  Age: 36 Year
  Sex: Female

DRUGS (2)
  1. MIRENA [Suspect]
     Active Substance: LEVONORGESTREL
     Indication: CONTRACEPTION
     Dosage: 20 ?G PER DAY, CONTINUOSLY
     Route: 015
     Dates: start: 20200206, end: 20200206
  2. MIRENA [Suspect]
     Active Substance: LEVONORGESTREL
     Indication: CONTRACEPTION
     Dosage: 20 ?G PER DAY, CONTINUOSLY
     Route: 015
     Dates: end: 20200206

REACTIONS (3)
  - Device breakage [None]
  - Device issue [None]
  - Device use issue [None]

NARRATIVE: CASE EVENT DATE: 20200206
